FAERS Safety Report 8940250 (Version 2)
Quarter: 2013Q1

REPORT INFORMATION
  Report Type: Report from Study
  Country: IL (occurrence: IL)
  Receive Date: 20121130
  Receipt Date: 20130110
  Transmission Date: 20140127
  Serious: Yes (Hospitalization)
  Sender: FDA-Public Use
  Company Number: IL-BAXTER-2012BAX024780

PATIENT
  Age: 46 Year
  Sex: Female
  Weight: 94.5 kg

DRUGS (5)
  1. ENDOXAN-1G [Suspect]
     Indication: BREAST CANCER
     Route: 042
     Dates: start: 20121104
  2. DOXORUBICIN [Suspect]
     Indication: BREAST CANCER
     Route: 042
     Dates: start: 20121104
  3. DEXAMETHASONE [Concomitant]
     Indication: PRODUCT USED FOR UNKNOWN INDICATION
     Route: 065
     Dates: start: 20121104, end: 20121107
  4. OMEPRADEX [Concomitant]
     Indication: PRODUCT USED FOR UNKNOWN INDICATION
     Route: 065
     Dates: start: 20121104, end: 20121107
  5. EMEND [Concomitant]
     Indication: PRODUCT USED FOR UNKNOWN INDICATION
     Route: 065
     Dates: start: 20121104, end: 20121106

REACTIONS (1)
  - Pancreatitis acute [Recovered/Resolved]
